FAERS Safety Report 10027853 (Version 4)
Quarter: 2014Q2

REPORT INFORMATION
  Report Type: Spontaneous
  Country: US (occurrence: US)
  Receive Date: 20140321
  Receipt Date: 20140421
  Transmission Date: 20141212
  Serious: Yes (Other)
  Sender: FDA-Public Use
  Company Number: PHEH2014US001515

PATIENT
  Sex: Female

DRUGS (14)
  1. EXFORGE HCT [Suspect]
     Indication: HYPERTENSION
     Dosage: 1 DF (160MG VALS/5MG AMLO), UNK
     Route: 048
  2. EXFORGE [Suspect]
     Indication: HYPERTENSION
     Dosage: 1 DF (VALS 160MG, AMLO 5MG)
     Route: 048
  3. EXFORGE [Suspect]
     Dosage: 0.5 DF (VALS 160MG, AMLO 5MG)
     Route: 048
  4. DIOVAN [Suspect]
     Dosage: 160 MG, UNK
  5. CLONIDINE [Suspect]
     Dosage: 4 DF (1MG) QD
  6. NOVOLET [Concomitant]
     Dosage: 20 MG, UNK
  7. LANTUS [Concomitant]
  8. ASPIRIN [Concomitant]
  9. TORSEMIDE [Concomitant]
     Dosage: 3 DF (10MG) A DAY
  10. ISOSORBIDE 5-MONONITRATO GEN MED [Concomitant]
     Dosage: 60 MG, UNK
  11. ALPRAZOLAM [Concomitant]
     Dosage: 5 MG, UNK
  12. SYNTHROID [Concomitant]
     Dosage: 112 MG, UNK
  13. CENTRUM SILVER [Concomitant]
     Dosage: UNK UKN, UNK
  14. NOVOLOG [Concomitant]
     Dosage: UNK UKN, UNK

REACTIONS (7)
  - Blood pressure increased [Unknown]
  - Fluid retention [Unknown]
  - Confusional state [Unknown]
  - Nervousness [Unknown]
  - Somnolence [Unknown]
  - Oedema peripheral [Unknown]
  - Blood pressure inadequately controlled [Unknown]
